FAERS Safety Report 4735339-3 (Version None)
Quarter: 2005Q3

REPORT INFORMATION
  Report Type: 
  Country: None (occurrence: None)
  Receive Date: 20050805
  Receipt Date: 20050419
  Transmission Date: 20060218
  Serious: Yes (Hospitalization)
  Sender: FDA-Public Use
  Company Number: JP-ROCHE-402610

PATIENT
  Age: 74 Year
  Sex: Female

DRUGS (2)
  1. TAMIFLU [Suspect]
     Route: 048
     Dates: start: 20050223, end: 20050226
  2. COCARL [Concomitant]
     Dosage: TAKEN AS NEEDED
     Route: 048
     Dates: start: 20050223, end: 20050224

REACTIONS (1)
  - CARDIAC FAILURE [None]
